FAERS Safety Report 15404715 (Version 2)
Quarter: 2018Q4

REPORT INFORMATION
  Report Type: Report from Study
  Country: None (occurrence: US)
  Receive Date: 20180919
  Receipt Date: 20181027
  Transmission Date: 20190204
  Serious: Yes (Hospitalization, Other)
  Sender: FDA-Public Use
  Company Number: US-ABBVIE-17K-163-2208662-00

PATIENT
  Age: 70 Year
  Sex: Male

DRUGS (2)
  1. HUMIRA [Suspect]
     Active Substance: ADALIMUMAB
     Indication: CROHN^S DISEASE
     Route: 058
  2. HUMIRA [Suspect]
     Active Substance: ADALIMUMAB
     Route: 058

REACTIONS (6)
  - Defaecation urgency [Recovering/Resolving]
  - Crohn^s disease [Recovering/Resolving]
  - Colitis [Unknown]
  - Abdominal adhesions [Unknown]
  - Gastrointestinal obstruction [Unknown]
  - Stoma site irritation [Recovering/Resolving]

NARRATIVE: CASE EVENT DATE: 2017
